FAERS Safety Report 4579167-0 (Version None)
Quarter: 2005Q1

REPORT INFORMATION
  Report Type: 
  Country: None (occurrence: None)
  Receive Date: 20050208
  Receipt Date: 20050208
  Transmission Date: 20050727
  Serious: Yes (Life-Threatening, Disabling, Other)
  Sender: FDA-Public Use
  Company Number: None

PATIENT
  Sex: Female
  Weight: 83.9154 kg

DRUGS (2)
  1. CYMBALTA [Suspect]
     Indication: DEPRESSION
     Dosage: 30 MG TWICE A DAY ORAL
     Route: 048
     Dates: start: 20041028, end: 20041217
  2. CYMBALTA [Suspect]
     Indication: MANIA
     Dosage: 30 MG TWICE A DAY ORAL
     Route: 048
     Dates: start: 20041028, end: 20041217

REACTIONS (15)
  - ACTIVITIES OF DAILY LIVING IMPAIRED [None]
  - ALOPECIA [None]
  - ASTHENIA [None]
  - BIPOLAR I DISORDER [None]
  - CONSTIPATION [None]
  - ECONOMIC PROBLEM [None]
  - GASTROOESOPHAGEAL REFLUX DISEASE [None]
  - HYPOTRICHOSIS [None]
  - IMPAIRED WORK ABILITY [None]
  - IMPULSIVE BEHAVIOUR [None]
  - MOOD SWINGS [None]
  - NIGHT SWEATS [None]
  - SUICIDAL IDEATION [None]
  - VAGINAL HAEMORRHAGE [None]
  - WEIGHT INCREASED [None]
